FAERS Safety Report 8484348-X (Version None)
Quarter: 2012Q3

REPORT INFORMATION
  Report Type: 
  Country: None (occurrence: None)
  Receive Date: 20120703
  Receipt Date: 20120627
  Transmission Date: 20120928
  Serious: Yes (Other)
  Sender: FDA-Public Use
  Company Number: PHEH2012US011674

PATIENT
  Sex: Male
  Weight: 79.819 kg

DRUGS (2)
  1. MYSOLINE [Concomitant]
     Indication: TREMOR
     Dosage: 50 MG, QD
     Route: 048
     Dates: start: 20110329
  2. EXELON [Suspect]
     Indication: AMNESIA
     Dosage: 9.5 MG/ 24 HOURS
     Route: 062
     Dates: start: 20120221

REACTIONS (7)
  - DISORIENTATION [None]
  - REGURGITATION [None]
  - ABDOMINAL DISCOMFORT [None]
  - DIZZINESS [None]
  - APPLICATION SITE ERYTHEMA [None]
  - DEMENTIA [None]
  - NAUSEA [None]
